FAERS Safety Report 8477978-2 (Version None)
Quarter: 2012Q2

REPORT INFORMATION
  Report Type: 
  Country: None (occurrence: None)
  Receive Date: 20120629
  Receipt Date: 20120622
  Transmission Date: 20120825
  Serious: Yes (Other)
  Sender: FDA-Public Use
  Company Number: US-MYLANLABS-2012S1010443

PATIENT
  Age: 58 Year
  Sex: Female
  Weight: 65.91 kg

DRUGS (14)
  1. SENNA S [Concomitant]
     Dosage: 50MG/86MG
  2. OMEPRAZOLE [Concomitant]
  3. LORATADINE [Concomitant]
  4. MULTIVITAMIN AND MINERAL [Concomitant]
  5. VITAMIN D [Concomitant]
  6. LORTAB [Concomitant]
     Dosage: 5MG/500MG
  7. LORAZEPAM [Concomitant]
  8. CLOZAPINE [Suspect]
     Indication: SCHIZOAFFECTIVE DISORDER
     Dates: start: 20110816, end: 20120510
  9. LEVOTHYROXINE [Concomitant]
  10. POTASSIUM CHLORIDE [Concomitant]
  11. ASPIRIN [Concomitant]
  12. LAMOTRIGINE [Concomitant]
  13. FUROSEMIDE [Concomitant]
  14. CARBOXYMETHYLCELLULOSE SODIUM [Concomitant]
     Dosage: BOTH EYES
     Route: 047

REACTIONS (3)
  - LEUKOPENIA [None]
  - GRANULOCYTOPENIA [None]
  - GASTROINTESTINAL HAEMORRHAGE [None]
